FAERS Safety Report 4300986-X (Version None)
Quarter: 2004Q1

REPORT INFORMATION
  Report Type: 
  Country: None (occurrence: None)
  Receive Date: 20040219
  Receipt Date: 20040211
  Transmission Date: 20041129
  Serious: Yes (Other)
  Sender: FDA-Public Use
  Company Number: 2004-02-0763

PATIENT
  Sex: Female

DRUGS (2)
  1. NITRO-DUR [Suspect]
     Indication: ANGINA PECTORIS
     Dosage: TRANSDERMAL
     Route: 062
     Dates: start: 20030101
  2. ALDACTONE [Concomitant]

REACTIONS (3)
  - CEREBROVASCULAR ACCIDENT [None]
  - DIZZINESS [None]
  - HEADACHE [None]
